FAERS Safety Report 7385819-X (Version None)
Quarter: 2011Q1

REPORT INFORMATION
  Report Type: 
  Country: None (occurrence: None)
  Receive Date: 20110331
  Receipt Date: 20110328
  Transmission Date: 20110831
  Serious: No
  Sender: FDA-Public Use
  Company Number: US-PFIZER INC-2011069499

PATIENT
  Sex: Female
  Weight: 76.2 kg

DRUGS (3)
  1. EFFEXOR XR [Suspect]
     Indication: DEPRESSION
     Dosage: UNK
     Route: 048
     Dates: start: 20090101, end: 20110325
  2. SYNTHROID [Concomitant]
     Indication: THYROID DISORDER
     Dosage: 125 UG, 1X/DAY
     Route: 048
  3. EFFEXOR XR [Suspect]
     Indication: ANXIETY

REACTIONS (3)
  - DIZZINESS [None]
  - NAUSEA [None]
  - FEELING ABNORMAL [None]
